FAERS Safety Report 15879119 (Version 2)
Quarter: 2019Q1

REPORT INFORMATION
  Report Type: Report from Study
  Country: JP (occurrence: JP)
  Receive Date: 20190128
  Receipt Date: 20190131
  Transmission Date: 20190417
  Serious: Yes (Hospitalization)
  Sender: FDA-Public Use
  Company Number: JP-KYOWAKIRIN-2019AKK000902

PATIENT

DRUGS (16)
  1. MOGAMULIZUMAB [Suspect]
     Active Substance: MOGAMULIZUMAB
     Indication: TROPICAL SPASTIC PARESIS
     Dosage: 0.3 MG/KG
     Route: 041
     Dates: start: 20180831
  2. MOGAMULIZUMAB [Suspect]
     Active Substance: MOGAMULIZUMAB
     Dosage: 0.3 MG/KG
     Route: 041
     Dates: start: 20180605, end: 20180605
  3. LANSOPRAZOLE. [Concomitant]
     Active Substance: LANSOPRAZOLE
     Indication: GASTRITIS PROPHYLAXIS
     Dosage: 15 MG, QD
     Route: 048
     Dates: start: 20150424
  4. ANTEBATE [Concomitant]
     Active Substance: BETAMETHASONE DIPROPIONATE
     Indication: ECZEMA ASTEATOTIC
     Dosage: UNK UNK, BID
     Route: 061
     Dates: start: 20180511
  5. XARELTO [Concomitant]
     Active Substance: RIVAROXABAN
     Indication: ATRIAL FIBRILLATION
     Dosage: 10 MG, QD
     Route: 048
     Dates: start: 201306
  6. ALENDRONATE [Concomitant]
     Active Substance: ALENDRONATE SODIUM
     Indication: OSTEOPOROSIS PROPHYLAXIS
     Dosage: 35 MG, 1X/WEEK
     Route: 048
     Dates: start: 20161028
  7. DEZOLAM [Concomitant]
     Active Substance: ETIZOLAM
     Indication: INSOMNIA
     Dosage: 0.5 MG, QD
     Route: 048
     Dates: start: 20180806
  8. MOGAMULIZUMAB [Suspect]
     Active Substance: MOGAMULIZUMAB
     Dosage: 0.3 MG/KG
     Route: 041
     Dates: start: 20180214, end: 20180214
  9. CARVEDILOL. [Concomitant]
     Active Substance: CARVEDILOL
     Indication: ATRIAL FIBRILLATION
     Dosage: 5 MG, QD
     Route: 048
     Dates: start: 201210
  10. HOCHUEKKITO                        /07973001/ [Concomitant]
     Active Substance: HERBALS
     Indication: DECREASED APPETITE
     Dosage: 2.5 G, BID
     Route: 048
     Dates: start: 201610
  11. MOGAMULIZUMAB [Suspect]
     Active Substance: MOGAMULIZUMAB
     Dosage: 0.3 MG/KG
     Route: 041
     Dates: start: 20171027, end: 20171027
  12. PREDONINE [Concomitant]
     Active Substance: PREDNISOLONE
     Indication: TROPICAL SPASTIC PARESIS
     Dosage: 5 MG, QD
     Route: 048
     Dates: start: 20140305
  13. BETANIS [Concomitant]
     Active Substance: MIRABEGRON
     Indication: TROPICAL SPASTIC PARESIS
     Dosage: 50 MG, QD
     Route: 048
     Dates: start: 20150220
  14. ZOLPIDEM TARTRATE. [Concomitant]
     Active Substance: ZOLPIDEM TARTRATE
     Indication: INSOMNIA
     Dosage: 5 MG, QD
     Route: 048
     Dates: start: 20190104
  15. LIORESAL [Concomitant]
     Active Substance: BACLOFEN
     Indication: TROPICAL SPASTIC PARESIS
     Dosage: 10 MG, TID
     Route: 048
     Dates: start: 20170526
  16. IMIDAFENACIN [Concomitant]
     Active Substance: IMIDAFENACIN
     Indication: TROPICAL SPASTIC PARESIS
     Dosage: 0.1 MG, BID
     Route: 048
     Dates: start: 20150220

REACTIONS (1)
  - Alopecia areata [Not Recovered/Not Resolved]

NARRATIVE: CASE EVENT DATE: 20190121
